FAERS Safety Report 11533911 (Version 8)
Quarter: 2016Q1

REPORT INFORMATION
  Report Type: Spontaneous
  Country: DE (occurrence: DE)
  Receive Date: 20150922
  Receipt Date: 20160223
  Transmission Date: 20160525
  Serious: Yes (Hospitalization)
  Sender: FDA-Public Use
  Company Number: DE-AMGEN-DEUSP2015096374

PATIENT
  Sex: Female

DRUGS (33)
  1. RITUXIMAB [Suspect]
     Active Substance: RITUXIMAB
     Dosage: 633 MG, 1 IN 1 D
     Route: 042
     Dates: start: 20151015, end: 20151015
  2. RAMIPRIL. [Concomitant]
     Active Substance: RAMIPRIL
     Indication: HYPERTENSION
     Dosage: 2.5 MG, 1 IN 1 D
     Route: 048
  3. ALLOPURINOL. [Concomitant]
     Active Substance: ALLOPURINOL
     Indication: PROPHYLAXIS
  4. SULFAMETHOXAZOLE-TRIMETHOPRIM (SMZ) [Concomitant]
     Active Substance: SULFAMETHOXAZOLE\TRIMETHOPRIM
     Indication: ANTIBIOTIC PROPHYLAXIS
     Dosage: 2 X 2 WEEKLY
     Route: 048
     Dates: start: 20150829
  5. CYCLOPHOSPHAMIDE. [Suspect]
     Active Substance: CYCLOPHOSPHAMIDE
     Indication: B-CELL LYMPHOMA
     Dosage: 1282.5 MG, 1 IN 1 D
     Route: 042
     Dates: start: 20150901, end: 20150901
  6. DOXORUBICIN [Suspect]
     Active Substance: DOXORUBICIN
     Indication: B-CELL LYMPHOMA
     Dosage: 85.5 MG, 1 IN 1 D
     Route: 042
     Dates: start: 20150901, end: 20150901
  7. PREDNISOLONE. [Suspect]
     Active Substance: PREDNISOLONE
     Indication: B-CELL LYMPHOMA
     Dosage: 100 MG, 1 IN 1 D
     Route: 048
     Dates: start: 20150901, end: 20150905
  8. PREDNISOLONE. [Suspect]
     Active Substance: PREDNISOLONE
     Dosage: 100 MG, 1 IN 1 D
     Route: 048
     Dates: start: 20151127, end: 20151201
  9. ACICLOVIR [Concomitant]
     Active Substance: ACYCLOVIR
     Indication: ANTIVIRAL PROPHYLAXIS
     Dosage: 400 MG, 2 IN 1 D
     Route: 048
     Dates: start: 20150828
  10. BUDESONIDE. [Concomitant]
     Active Substance: BUDESONIDE
     Indication: SARCOIDOSIS
     Dosage: 400 MG, 2 IN 1 D
     Route: 055
     Dates: start: 201508
  11. FILGRASTIM [Suspect]
     Active Substance: FILGRASTIM
     Dosage: 300 MCG, 1 IN 1 D
     Route: 058
     Dates: start: 20151019, end: 20151024
  12. FILGRASTIM [Suspect]
     Active Substance: FILGRASTIM
     Dosage: 300 MCG, 1 IN 1 D
     Route: 058
     Dates: start: 20151130, end: 20151203
  13. VINCRISTINE [Suspect]
     Active Substance: VINCRISTINE
     Indication: B-CELL LYMPHOMA
     Dosage: 3.62 MG, 1 IN 1 D
     Route: 042
     Dates: start: 20150901, end: 20150901
  14. PREDNISOLONE. [Suspect]
     Active Substance: PREDNISOLONE
     Dosage: 12.5 MG, 1 IN 1 D
     Route: 048
     Dates: start: 20150906, end: 20150908
  15. COLECALCIFEROL [Concomitant]
     Active Substance: CHOLECALCIFEROL
     Indication: VITAMIN D DEFICIENCY
     Dosage: 20000 IU, 1 IN 1 WK
     Route: 048
     Dates: start: 20150827, end: 20150827
  16. CIPROFLOXACIN. [Concomitant]
     Active Substance: CIPROFLOXACIN
     Indication: ANTIBIOTIC PROPHYLAXIS
     Dosage: 500 MG, 2 IN 1 D
     Route: 048
     Dates: start: 20150906
  17. VINCRISTINE [Suspect]
     Active Substance: VINCRISTINE
     Dosage: 3.38 MG, 1 IN 1 D
     Route: 042
     Dates: start: 20151016, end: 20151016
  18. VINCRISTINE [Suspect]
     Active Substance: VINCRISTINE
     Dosage: LAST DOSE PRIOR TO SAE - 27/NOV/2015 (1 IN 1 D)
     Route: 042
     Dates: start: 20151127
  19. PANTOPRAZOLE SODIUM. [Concomitant]
     Active Substance: PANTOPRAZOLE SODIUM
     Indication: PROPHYLAXIS AGAINST GASTROINTESTINAL ULCER
     Dosage: 40 MG, 1 IN 1 D
     Route: 048
     Dates: start: 20150824
  20. CIPROFLOXACIN. [Concomitant]
     Active Substance: CIPROFLOXACIN
     Dosage: 500 MG, 1 IN 1 D
     Route: 048
     Dates: start: 20151021
  21. RITUXIMAB [Suspect]
     Active Substance: RITUXIMAB
     Indication: B-CELL LYMPHOMA
     Dosage: 641 MG, 1 IN 1 D
     Route: 042
     Dates: start: 20150831, end: 20150831
  22. RITUXIMAB [Suspect]
     Active Substance: RITUXIMAB
     Dosage: LAST DOSE PRIOR TO SAE- 10/DEC/2015 (1 IN 1 D)
     Route: 042
     Dates: start: 20151210
  23. CYCLOPHOSPHAMIDE. [Suspect]
     Active Substance: CYCLOPHOSPHAMIDE
     Dosage: 1290 MG, 1 IN 1 D
     Route: 042
     Dates: start: 20151016, end: 20151016
  24. ALLOPURINOL. [Concomitant]
     Active Substance: ALLOPURINOL
     Indication: HYPERURICAEMIA
     Dosage: 100 MG, 1 IN 1 D
     Route: 048
     Dates: start: 201508
  25. FILGRASTIM [Suspect]
     Active Substance: FILGRASTIM
     Indication: B-CELL LYMPHOMA
     Dosage: 300 MCG, 1 IN 1 D
     Route: 058
     Dates: start: 20150904, end: 20150907
  26. PREDNISOLONE. [Suspect]
     Active Substance: PREDNISOLONE
     Indication: ADRENAL INSUFFICIENCY
     Dosage: 100 MG, 1 IN 1 D
     Route: 048
     Dates: start: 20151016, end: 20151020
  27. PREDNISOLONE. [Suspect]
     Active Substance: PREDNISOLONE
     Dosage: 50 MG, 1 IN 1 D
     Route: 048
     Dates: start: 20150906, end: 20150908
  28. PREDNISOLONE. [Suspect]
     Active Substance: PREDNISOLONE
     Dosage: 25 MG, 1 IN 1 D
     Route: 048
     Dates: start: 20150906
  29. TILIDIN [Concomitant]
     Active Substance: NALOXONE HYDROCHLORIDE\TILIDINE HYDROCHLORIDE
     Indication: PAIN
     Dosage: 8 MG, 2 IN 1 D
     Route: 048
  30. CYCLOPHOSPHAMIDE. [Suspect]
     Active Substance: CYCLOPHOSPHAMIDE
     Dosage: LAST DOSE PRIOR TO SAE - 27/NOV/2015 (1 IN 1 D)
     Route: 042
     Dates: start: 20151127
  31. DOXORUBICIN [Suspect]
     Active Substance: DOXORUBICIN
     Dosage: 86 MG, 1 IN 1 D
     Route: 042
     Dates: start: 20151016, end: 20151016
  32. DOXORUBICIN [Suspect]
     Active Substance: DOXORUBICIN
     Dosage: LAST DOSE PRIOR TO SAE 27/NOV/2015 (1 IN 1 D)
     Route: 042
     Dates: start: 20151127
  33. AMPHOTERICIN B. [Concomitant]
     Active Substance: AMPHOTERICIN B
     Indication: PROPHYLAXIS AGAINST GASTROINTESTINAL ULCER
     Dosage: 5 ML, 4 IN 1 D
     Route: 048
     Dates: start: 20150824

REACTIONS (3)
  - Pyrexia [Recovered/Resolved]
  - Constipation [Recovered/Resolved]
  - General physical health deterioration [Recovered/Resolved]

NARRATIVE: CASE EVENT DATE: 20150908
